FAERS Safety Report 17680077 (Version 1)
Quarter: 2020Q2

REPORT INFORMATION
  Report Type: Spontaneous
  Country: US (occurrence: US)
  Receive Date: 20200417
  Receipt Date: 20200417
  Transmission Date: 20200714
  Serious: Yes (Life-Threatening)
  Sender: FDA-Public Use
  Company Number: None

PATIENT
  Age: 56 Year
  Sex: Male

DRUGS (1)
  1. HEPARIN (HEPARIN NA (BEEF) 5000UNT/ML INJ) [Suspect]
     Active Substance: HEPARIN SODIUM, BOVINE
     Indication: ANTICOAGULANT THERAPY

REACTIONS (8)
  - Ventricular fibrillation [None]
  - Deep vein thrombosis [None]
  - Hypersensitivity [None]
  - Pericardial effusion [None]
  - Acute myocardial infarction [None]
  - Pericarditis [None]
  - Bacteraemia [None]
  - Heparin-induced thrombocytopenia [None]

NARRATIVE: CASE EVENT DATE: 20190331
